FAERS Safety Report 9316651 (Version 1)
Quarter: 2013Q2

REPORT INFORMATION
  Report Type: Spontaneous
  Country: US (occurrence: None)
  Receive Date: 20130524
  Receipt Date: 20130524
  Transmission Date: 20140414
  Serious: Yes (Other)
  Sender: FDA-Public Use
  Company Number: AUR-APL-2013-04100

PATIENT
  Age: 65 Year
  Sex: Male

DRUGS (1)
  1. VALPROATE SEMISODIUM [Suspect]
     Indication: CONVULSION
     Dosage: 1250MG, 1D)

REACTIONS (5)
  - Parkinsonism [None]
  - Dyskinesia [None]
  - Cognitive disorder [None]
  - Posture abnormal [None]
  - Muscle rigidity [None]
